FAERS Safety Report 24530322 (Version 2)
Quarter: 2024Q4

REPORT INFORMATION
  Report Type: Spontaneous
  Country: JP (occurrence: JP)
  Receive Date: 20241021
  Receipt Date: 20241029
  Transmission Date: 20250115
  Serious: No
  Sender: ABBVIE
  Company Number: JP-ABBVIE-5969282

PATIENT
  Sex: Male

DRUGS (2)
  1. VENCLEXTA [Suspect]
     Active Substance: VENETOCLAX
     Indication: Acute myeloid leukaemia
     Route: 048
  2. AZACITIDINE [Concomitant]
     Active Substance: AZACITIDINE
     Indication: Acute myeloid leukaemia
     Route: 065

REACTIONS (4)
  - Blood immunoglobulin G decreased [Unknown]
  - Blood immunoglobulin A increased [Recovering/Resolving]
  - Blood immunoglobulin A decreased [Unknown]
  - Immunodeficiency [Unknown]
